FAERS Safety Report 6788823-5 (Version None)
Quarter: 2010Q2

REPORT INFORMATION
  Report Type: 
  Country: None (occurrence: None)
  Receive Date: 20100623
  Receipt Date: 20080605
  Transmission Date: 20101027
  Serious: Yes (Hospitalization, Other)
  Sender: FDA-Public Use
  Company Number: US-PFIZER INC-2008040350

PATIENT
  Sex: Female
  Weight: 61.2 kg

DRUGS (3)
  1. GEODON [Suspect]
     Indication: BIPOLAR DISORDER
     Route: 048
     Dates: start: 20080330, end: 20080331
  2. GEODON [Suspect]
     Indication: MANIA
  3. CYMBALTA [Concomitant]
     Indication: DEPRESSION
     Route: 048
     Dates: end: 20080331

REACTIONS (1)
  - DYSTONIA [None]
